FAERS Safety Report 26195015 (Version 1)
Quarter: 2025Q4

REPORT INFORMATION
  Report Type: Spontaneous
  Country: JP (occurrence: JP)
  Receive Date: 20251224
  Receipt Date: 20251224
  Transmission Date: 20260117
  Serious: Yes (Death, Other)
  Sender: Vantive US Healthcare
  Company Number: JP-VANTIVE-2025VAN005477

PATIENT
  Age: 5 Decade

DRUGS (1)
  1. REGUNEAL LCA [Suspect]
     Active Substance: CALCIUM CHLORIDE\DEXTROSE MONOHYDRATE\HYDROCHLORIC ACID\MAGNESIUM CHLORIDE\SODIUM BICARBONATE\SODIUM
     Indication: Chronic kidney disease
     Dosage: 7000 (DETAILS NOT REPORTED)

REACTIONS (2)
  - Cardiac failure [Fatal]
  - Mental disorder [Unknown]

NARRATIVE: CASE EVENT DATE: 20251126
